FAERS Safety Report 8374046-5 (Version None)
Quarter: 2012Q2

REPORT INFORMATION
  Report Type: 
  Country: None (occurrence: None)
  Receive Date: 20120517
  Receipt Date: 20120517
  Transmission Date: 20120825
  Serious: Yes (Other)
  Sender: FDA-Public Use
  Company Number: None

PATIENT
  Age: 40 Year
  Sex: Female
  Weight: 73.9363 kg

DRUGS (1)
  1. BOTOX [Suspect]

REACTIONS (10)
  - MUSCULAR WEAKNESS [None]
  - DIZZINESS [None]
  - MUSCULOSKELETAL PAIN [None]
  - PAIN IN EXTREMITY [None]
  - DYSPHAGIA [None]
  - DYSPNOEA [None]
  - POSTURE ABNORMAL [None]
  - BACK PAIN [None]
  - HEADACHE [None]
  - NECK PAIN [None]
